FAERS Safety Report 19998453 (Version 1)
Quarter: 2021Q4

REPORT INFORMATION
  Report Type: Spontaneous
  Country: US (occurrence: US)
  Receive Date: 20211026
  Receipt Date: 20211026
  Transmission Date: 20220303
  Serious: Yes (Other)
  Sender: FDA-Public Use
  Company Number: US-GLAXOSMITHKLINE-US2021GSK222475

PATIENT
  Sex: Female

DRUGS (18)
  1. RANITIDINE [Suspect]
     Active Substance: RANITIDINE
     Indication: Dyspepsia
     Dosage: UNK UNK, QD
     Route: 065
     Dates: start: 198101
  2. RANITIDINE [Suspect]
     Active Substance: RANITIDINE
     Indication: Duodenal ulcer
     Dosage: UNK
  3. ZANTAC [Suspect]
     Active Substance: RANITIDINE HYDROCHLORIDE
     Indication: Dyspepsia
     Dosage: UNK UNK, QD
     Route: 065
     Dates: start: 198301, end: 201101
  4. ZANTAC [Suspect]
     Active Substance: RANITIDINE HYDROCHLORIDE
     Indication: Duodenal ulcer
     Dosage: UNK
  5. ZANTAC [Suspect]
     Active Substance: RANITIDINE HYDROCHLORIDE
     Indication: Dyspepsia
     Dosage: UNK UNK, QD
     Route: 065
     Dates: start: 198301, end: 201101
  6. ZANTAC [Suspect]
     Active Substance: RANITIDINE HYDROCHLORIDE
     Indication: Duodenal ulcer
     Dosage: UNK
  7. ZANTAC [Suspect]
     Active Substance: RANITIDINE HYDROCHLORIDE
     Indication: Dyspepsia
     Dosage: UNK UNK, QD
     Route: 065
     Dates: start: 198301, end: 201101
  8. ZANTAC [Suspect]
     Active Substance: RANITIDINE HYDROCHLORIDE
     Indication: Duodenal ulcer
     Dosage: UNK
  9. RANITIDINE [Suspect]
     Active Substance: RANITIDINE
     Indication: Dyspepsia
     Dosage: 25 MG BOTH
     Route: 065
     Dates: start: 199301, end: 200601
  10. RANITIDINE [Suspect]
     Active Substance: RANITIDINE
     Indication: Duodenal ulcer
     Dosage: UNK, QD
     Route: 065
     Dates: start: 199301, end: 200601
  11. ZANTAC [Suspect]
     Active Substance: RANITIDINE HYDROCHLORIDE
     Indication: Dyspepsia
     Dosage: UNK UNK, QD
     Route: 065
     Dates: start: 198101, end: 199101
  12. ZANTAC [Suspect]
     Active Substance: RANITIDINE HYDROCHLORIDE
     Indication: Duodenal ulcer
     Dosage: UNK
  13. RANITIDINE [Suspect]
     Active Substance: RANITIDINE
     Indication: Dyspepsia
     Dosage: 25 MG BOTH
     Route: 065
     Dates: start: 199301, end: 200601
  14. RANITIDINE [Suspect]
     Active Substance: RANITIDINE
     Indication: Duodenal ulcer
     Dosage: UNK, QD
     Route: 065
     Dates: start: 199301, end: 200601
  15. RANITIDINE [Suspect]
     Active Substance: RANITIDINE
     Indication: Dyspepsia
     Dosage: 25 MG BOTH
     Route: 065
     Dates: start: 199301, end: 200601
  16. RANITIDINE [Suspect]
     Active Substance: RANITIDINE
     Indication: Duodenal ulcer
     Dosage: UNK, QD
     Route: 065
     Dates: start: 199301, end: 200601
  17. RANITIDINE [Suspect]
     Active Substance: RANITIDINE
     Indication: Dyspepsia
     Dosage: 25 MG BOTH
     Route: 065
     Dates: start: 199301, end: 200601
  18. RANITIDINE [Suspect]
     Active Substance: RANITIDINE
     Indication: Duodenal ulcer
     Dosage: UNK, QD
     Route: 065
     Dates: start: 199301, end: 200601

REACTIONS (1)
  - Breast cancer [Unknown]
